FAERS Safety Report 7389208-3 (Version None)
Quarter: 2011Q1

REPORT INFORMATION
  Report Type: 
  Country: None (occurrence: None)
  Receive Date: 20110324
  Receipt Date: 20110315
  Transmission Date: 20110831
  Serious: Yes (Other)
  Sender: FDA-Public Use
  Company Number: 1000019269

PATIENT
  Age: 20 Year
  Sex: Female

DRUGS (2)
  1. LEXAPRO [Suspect]
     Dosage: 20 MG (20 MG,1 IN 1 D), ORAL
     Route: 048
  2. VYVANSE (LISDEXAMFETAMINE) (LISDEXAMFETAMINE) [Concomitant]

REACTIONS (2)
  - PITUITARY TUMOUR BENIGN [None]
  - HYPERPROLACTINAEMIA [None]
